FAERS Safety Report 8061368-0 (Version None)
Quarter: 2012Q1

REPORT INFORMATION
  Report Type: 
  Country: None (occurrence: None)
  Receive Date: 20120120
  Receipt Date: 20120111
  Transmission Date: 20120608
  Serious: Yes (Other)
  Sender: FDA-Public Use
  Company Number: US-ASTRAZENECA-2012SE02441

PATIENT
  Age: 56 Year
  Sex: Female

DRUGS (6)
  1. SYMBICORT [Suspect]
     Route: 055
  2. PREDNISONE TAB [Concomitant]
  3. RHINOCORT [Suspect]
     Route: 045
  4. BACTRIM [Concomitant]
  5. PAIN MEDICINE [Concomitant]
     Indication: PAIN
  6. PROMETHAZINE [Concomitant]

REACTIONS (6)
  - DYSPNOEA [None]
  - ACTIVITIES OF DAILY LIVING IMPAIRED [None]
  - THROMBOSIS [None]
  - MALAISE [None]
  - NASAL CONGESTION [None]
  - MULTIPLE ALLERGIES [None]
